FAERS Safety Report 8419224-1 (Version None)
Quarter: 2012Q2

REPORT INFORMATION
  Report Type: 
  Country: None (occurrence: None)
  Receive Date: 20120607
  Receipt Date: 20120528
  Transmission Date: 20120825
  Serious: Yes (Hospitalization)
  Sender: FDA-Public Use
  Company Number: JP-JNJFOC-20120600177

PATIENT
  Sex: Male
  Weight: 71 kg

DRUGS (9)
  1. METHOTREXATE [Suspect]
     Indication: RHEUMATOID ARTHRITIS
     Dates: start: 20111128
  2. CALBLOCK [Concomitant]
     Route: 048
  3. FAMOTIDINE [Concomitant]
     Route: 048
  4. ALL OTHER MEDICATION [Concomitant]
     Indication: RHEUMATOID ARTHRITIS
     Route: 048
  5. LANSOPRAZOLE [Concomitant]
  6. SIMPONI [Suspect]
     Indication: RHEUMATOID ARTHRITIS
     Route: 058
     Dates: start: 20111028
  7. SIMPONI [Suspect]
     Route: 058
     Dates: start: 20111224
  8. SIMPONI [Suspect]
     Route: 058
     Dates: start: 20120213
  9. PREDNISOLONE [Concomitant]
     Route: 048
     Dates: start: 20111128

REACTIONS (5)
  - LUNG NEOPLASM [None]
  - TREATMENT NONCOMPLIANCE [None]
  - RHEUMATOID ARTHRITIS [None]
  - PLEURAL EFFUSION [None]
  - CONDITION AGGRAVATED [None]
